FAERS Safety Report 8050478-X (Version None)
Quarter: 2011Q4

REPORT INFORMATION
  Report Type: 
  Country: None (occurrence: None)
  Receive Date: 20111212
  Receipt Date: 20110906
  Transmission Date: 20120403
  Serious: Yes (Other)
  Sender: FDA-Public Use
  Company Number: PHHY2010US45934

PATIENT
  Age: 41 Year
  Sex: Female
  Weight: 79.4 kg

DRUGS (3)
  1. IBUPROFEN (IBUPROFEN) [Concomitant]
  2. EXTAVIA [Suspect]
     Indication: MULTIPLE SCLEROSIS
     Dosage: 0.25 MG, QOD, SUBCUTANEOUS 0.25 MG, QOD, SUBCUTANEOUS
     Route: 058
     Dates: start: 20100721
  3. EXTAVIA [Suspect]
     Indication: MULTIPLE SCLEROSIS
     Dosage: 0.25 MG, QOD, SUBCUTANEOUS 0.25 MG, QOD, SUBCUTANEOUS
     Route: 058
     Dates: start: 20100708

REACTIONS (5)
  - INJECTION SITE PAIN [None]
  - HEADACHE [None]
  - INJECTION SITE HAEMATOMA [None]
  - INJECTION SITE ERYTHEMA [None]
  - INJECTION SITE URTICARIA [None]
